FAERS Safety Report 9323327 (Version 3)
Quarter: 2013Q4

REPORT INFORMATION
  Report Type: Spontaneous
  Country: US (occurrence: US)
  Receive Date: 20130603
  Receipt Date: 20131121
  Transmission Date: 20140711
  Serious: Yes (Hospitalization, Other)
  Sender: FDA-Public Use
  Company Number: US-B.I. PHARMACEUTICALS,INC./RIDGEFIELD-2013-BI-15143BP

PATIENT
  Age: 64 Year
  Sex: Female
  Weight: 112.49 kg

DRUGS (8)
  1. PRADAXA [Suspect]
     Indication: ATRIAL FIBRILLATION
     Dosage: 300 MG
     Dates: start: 20110328
  2. CLONIDINE HCL [Concomitant]
     Dosage: 0.4 MG
  3. FLINTSTONES VITAMINS [Concomitant]
  4. LISINOPRIL [Concomitant]
     Dosage: 40 MG
     Route: 048
  5. METOPROLOL SUCCINATE [Concomitant]
     Dosage: 100 MG
  6. SIMVASTATIN [Concomitant]
     Indication: DYSLIPIDAEMIA
     Dosage: 80 MG
     Route: 048
  7. TRAMADOL HCL [Concomitant]
     Dosage: 200 MG
  8. GLIMEPIRIDE [Concomitant]
     Indication: DYSLIPIDAEMIA

REACTIONS (3)
  - Splenic haematoma [Unknown]
  - Fall [Unknown]
  - Haemorrhagic anaemia [Not Recovered/Not Resolved]
